FAERS Safety Report 10148215 (Version 5)
Quarter: 2016Q3

REPORT INFORMATION
  Report Type: Report from Study
  Country: US (occurrence: US)
  Receive Date: 20140501
  Receipt Date: 20160926
  Transmission Date: 20161108
  Serious: Yes (Hospitalization, Other)
  Sender: FDA-Public Use
  Company Number: US-AMGEN-USASP2014027867

PATIENT
  Age: 65 Year
  Sex: Female

DRUGS (3)
  1. METHOTREXATE. [Concomitant]
     Active Substance: METHOTREXATE
     Dosage: 7.5 MG, QWK
     Route: 048
     Dates: start: 2012
  2. ENBREL [Suspect]
     Active Substance: ETANERCEPT
     Dosage: UNK
     Route: 065
  3. ENBREL [Suspect]
     Active Substance: ETANERCEPT
     Indication: RHEUMATOID ARTHRITIS
     Dosage: 50 MG, QWK
     Route: 065
     Dates: start: 2013

REACTIONS (22)
  - Breast mass [Unknown]
  - Peripheral coldness [Not Recovered/Not Resolved]
  - Phobia [Unknown]
  - Paraesthesia [Not Recovered/Not Resolved]
  - Injection site erythema [Recovered/Resolved]
  - Arthropathy [Not Recovered/Not Resolved]
  - Mammogram abnormal [Unknown]
  - Skin discolouration [Not Recovered/Not Resolved]
  - Injection site pain [Recovered/Resolved]
  - Mobility decreased [Recovered/Resolved]
  - Pain [Recovered/Resolved]
  - Knee arthroplasty [Unknown]
  - Migraine [Unknown]
  - Frequent bowel movements [Unknown]
  - Peripheral swelling [Recovered/Resolved]
  - Hypoaesthesia [Not Recovered/Not Resolved]
  - Erythema [Recovered/Resolved]
  - Blood pressure increased [Unknown]
  - Injection site macule [Recovered/Resolved]
  - Joint destruction [Not Recovered/Not Resolved]
  - Fear of injection [Unknown]
  - Injection site swelling [Recovered/Resolved]

NARRATIVE: CASE EVENT DATE: 20130827
